FAERS Safety Report 5628224-6 (Version None)
Quarter: 2008Q1

REPORT INFORMATION
  Report Type: 
  Country: None (occurrence: None)
  Receive Date: 20080131
  Receipt Date: 20071217
  Transmission Date: 20080703
  Serious: No
  Sender: FDA-Public Use
  Company Number: 163-21880-07111367

PATIENT
  Age: 54 Year
  Sex: Female

DRUGS (4)
  1. REVLIMID [Suspect]
     Indication: MULTIPLE MYELOMA
     Dosage: 25 MG, DAILY X21 OUT OF 28 DAYS, ORAL; 15 MG, DAILY X21 OUT OF 28 DAYS, ORAL
     Route: 048
     Dates: start: 20070201, end: 20070701
  2. DEXAMETHASONE TAB [Concomitant]
  3. ACETAMINOPHEN [Concomitant]
  4. ZOMETA [Concomitant]

REACTIONS (4)
  - CONSTIPATION [None]
  - HYPOAESTHESIA [None]
  - MUSCLE SPASMS [None]
  - PAIN IN EXTREMITY [None]
